FAERS Safety Report 22168843 (Version 1)
Quarter: 2023Q2

REPORT INFORMATION
  Report Type: Report from Study
  Country: US (occurrence: US)
  Receive Date: 20230403
  Receipt Date: 20230403
  Transmission Date: 20230721
  Serious: Yes (Other)
  Sender: FDA-Public Use
  Company Number: US-ABBVIE-4272838

PATIENT
  Age: 54 Year
  Sex: Female

DRUGS (1)
  1. ORILISSA [Suspect]
     Active Substance: ELAGOLIX SODIUM
     Indication: Product used for unknown indication
     Dosage: 200 MG
     Route: 048

REACTIONS (7)
  - Hysterectomy [Unknown]
  - Panic attack [Unknown]
  - Body temperature abnormal [Unknown]
  - Essential tremor [Unknown]
  - Muscle spasms [Unknown]
  - Chills [Unknown]
  - Muscular weakness [Unknown]

NARRATIVE: CASE EVENT DATE: 20221101
